FAERS Safety Report 19239274 (Version 1)
Quarter: 2021Q2

REPORT INFORMATION
  Report Type: Spontaneous
  Country: US (occurrence: US)
  Receive Date: 20210511
  Receipt Date: 20210511
  Transmission Date: 20210717
  Serious: No
  Sender: FDA-Public Use
  Company Number: US-SA-2021SA149313

PATIENT
  Age: 52 Year
  Sex: Male

DRUGS (1)
  1. DUPIXENT [Suspect]
     Active Substance: DUPILUMAB
     Indication: DERMATITIS ATOPIC
     Dosage: 300 MG
     Route: 058
     Dates: start: 202003

REACTIONS (9)
  - Pruritus [Unknown]
  - Rash [Unknown]
  - Eye pruritus [Recovering/Resolving]
  - Dry skin [Recovering/Resolving]
  - Localised infection [Unknown]
  - Skin exfoliation [Unknown]
  - Dermatitis atopic [Recovering/Resolving]
  - Eyelid margin crusting [Recovering/Resolving]
  - Sleep disorder [Unknown]

NARRATIVE: CASE EVENT DATE: 2020
